FAERS Safety Report 25459934 (Version 1)
Quarter: 2025Q2

REPORT INFORMATION
  Report Type: Spontaneous
  Country: US (occurrence: US)
  Receive Date: 20250620
  Receipt Date: 20250620
  Transmission Date: 20250717
  Serious: Yes (Hospitalization, Other)
  Sender: CHEPLAPHARM
  Company Number: US-ROCHE-10000303872

PATIENT
  Sex: Female
  Weight: 68.489 kg

DRUGS (2)
  1. CAPECITABINE [Suspect]
     Active Substance: CAPECITABINE
     Indication: Neoplasm malignant
     Dosage: 500 MG, 2 EVERY 1 DAY?DAILY DOSE: 2 DOSAGE FORM
     Route: 048
     Dates: start: 20250515
  2. TUKYSA [Suspect]
     Active Substance: TUCATINIB
     Indication: Neoplasm malignant
     Dosage: DAILY DOSE: 150 MILLIGRAM
     Route: 048
     Dates: start: 20250515

REACTIONS (10)
  - Brain neoplasm [Not Recovered/Not Resolved]
  - Dyspnoea [Unknown]
  - Bone cancer [Unknown]
  - Muscular weakness [Not Recovered/Not Resolved]
  - Hypoaesthesia [Unknown]
  - Myalgia [Not Recovered/Not Resolved]
  - Bone pain [Not Recovered/Not Resolved]
  - Fluid retention [Unknown]
  - Inflammation [Unknown]
  - Product dose omission issue [Unknown]
